FAERS Safety Report 6908367-7 (Version None)
Quarter: 2010Q3

REPORT INFORMATION
  Report Type: 
  Country: None (occurrence: None)
  Receive Date: 20100803
  Receipt Date: 20100720
  Transmission Date: 20110219
  Serious: Yes (Hospitalization)
  Sender: FDA-Public Use
  Company Number: 7011649

PATIENT
  Age: 50 Year
  Sex: Female
  Weight: 48 kg

DRUGS (2)
  1. REBIF [Suspect]
     Indication: MULTIPLE SCLEROSIS
     Dates: start: 20071001, end: 20090527
  2. UNSPECIFIED MEDICATION (ALL OTHER THERAPEUTIC PRODUCTS) [Concomitant]

REACTIONS (3)
  - AMNESIA [None]
  - CARDIAC FAILURE CONGESTIVE [None]
  - TYPE 2 DIABETES MELLITUS [None]
